FAERS Safety Report 10067474 (Version 4)
Quarter: 2014Q2

REPORT INFORMATION
  Report Type: Spontaneous
  Country: IT (occurrence: None)
  Receive Date: 20140407
  Receipt Date: 20140421
  Transmission Date: 20141212
  Serious: Yes (Other)
  Sender: FDA-Public Use
  Company Number: AUR-APL-2014-04153

PATIENT
  Age: 84 Year
  Sex: Female

DRUGS (3)
  1. CITALOPRAM [Suspect]
     Indication: DEPRESSION
     Dosage: TOTAL
     Route: 048
     Dates: start: 20140320, end: 20140320
  2. LORAZEPAM [Suspect]
     Indication: ANXIETY
     Dosage: TOTAL
     Route: 048
     Dates: start: 20140320, end: 20140320
  3. LANSOPRAZOL (LANSOPRAZOLE) [Concomitant]

REACTIONS (8)
  - Confusional state [None]
  - Sopor [None]
  - Incorrect dose administered [None]
  - Blood glucose increased [None]
  - Oxygen saturation decreased [None]
  - Medication error [None]
  - Intentional product misuse [None]
  - Drug abuse [None]
